FAERS Safety Report 8806087 (Version 1)
Quarter: 2012Q4

REPORT INFORMATION
  Report Type: Spontaneous
  Country: US (occurrence: None)
  Receive Date: 20120917
  Receipt Date: 20120917
  Transmission Date: 20130627
  Serious: Yes (Other)
  Sender: FDA-Public Use
  Company Number: 2012-4077

PATIENT
  Age: 72 Year
  Sex: Female

DRUGS (11)
  1. THYROID MEDICATION (THYROID THERAPY) [Concomitant]
  2. NEXIUM (ESOMEPRAZOLE MAGNESIUM) [Concomitant]
  3. LASIX (FUROSEMIDE) [Concomitant]
  4. ASPIRIN (ACETYLSALICYLIC ACID) [Concomitant]
  5. COUMADIN (WARFARIN SODIUM) [Concomitant]
  6. CENTRUM SILVER [Concomitant]
  7. VITAMIN D (ERGOCALCIFEROL) [Concomitant]
  8. ZETIA (EZETIMIBE) [Concomitant]
  9. LISINOPRIL [Concomitant]
  10. UNSPECIFIED MEDICATION (ALL OTHER THERAPEUTIC PRODUCTS) [Concomitant]
  11. SOMATULINE DEPOT [Suspect]
     Indication: ACROMEGALY
     Dosage: 120 MG, once every 6 weeks (120 MG, 1 in 6 wk), Subcutaneous
     Route: 058
     Dates: start: 20110416, end: 20120727

REACTIONS (1)
  - Unresponsive to stimuli [None]
